FAERS Safety Report 4556504-4 (Version None)
Quarter: 2005Q1

REPORT INFORMATION
  Report Type: 
  Country: None (occurrence: None)
  Receive Date: 20050118
  Receipt Date: 20050104
  Transmission Date: 20050727
  Serious: Yes (Hospitalization)
  Sender: FDA-Public Use
  Company Number: FABR-10928

PATIENT
  Age: 58 Year
  Sex: Male
  Weight: 74.4 kg

DRUGS (6)
  1. FABRAZYME [Suspect]
     Indication: FABRY'S DISEASE
     Dosage: 1 MG/KG Q2WKS IV
     Route: 042
     Dates: start: 20030718
  2. CELLCEPT [Concomitant]
  3. BACTRIM [Concomitant]
  4. NEORAL [Concomitant]
  5. LASIX [Concomitant]
  6. COUMADIN [Concomitant]

REACTIONS (4)
  - HEART RATE INCREASED [None]
  - IMPLANTABLE DEFIBRILLATOR INSERTION [None]
  - LOSS OF CONSCIOUSNESS [None]
  - SYNCOPE [None]
